FAERS Safety Report 5407507-9 (Version None)
Quarter: 2007Q3

REPORT INFORMATION
  Report Type: 
  Country: None (occurrence: None)
  Receive Date: 20070807
  Receipt Date: 20070802
  Transmission Date: 20080115
  Serious: Yes (Hospitalization)
  Sender: FDA-Public Use
  Company Number: FRWYE124702AUG07

PATIENT
  Sex: Male
  Weight: 13 kg

DRUGS (2)
  1. ADVIL [Suspect]
     Dosage: UNKNOWN
     Route: 048
     Dates: start: 20050710, end: 20050711
  2. CEFACLOR [Suspect]
     Dosage: UNKNOWN
     Dates: start: 20050701, end: 20050711

REACTIONS (3)
  - BLOOD IMMUNOGLOBULIN E INCREASED [None]
  - ERYTHEMA MULTIFORME [None]
  - TACHYCARDIA [None]
